FAERS Safety Report 6681278-0 (Version None)
Quarter: 2010Q2

REPORT INFORMATION
  Report Type: 
  Country: None (occurrence: None)
  Receive Date: 20100414
  Receipt Date: 20100408
  Transmission Date: 20101027
  Serious: Yes (Death)
  Sender: FDA-Public Use
  Company Number: JP-ROCHE-696830

PATIENT
  Sex: Female
  Weight: 37 kg

DRUGS (3)
  1. CAPECITABINE [Suspect]
     Indication: COLON CANCER
     Dosage: IT IS ONE ADMINISTERING WEEKLY HOLIDAY MEDICINE FOR TWO WEEKS.
     Route: 048
     Dates: start: 20090205, end: 20090312
  2. FERROMIA [Concomitant]
     Route: 048
     Dates: start: 20090205, end: 20090409
  3. PYDOXAL [Concomitant]
     Dosage: DRUG: PYDOXAL TAB
     Route: 048
     Dates: start: 20090205, end: 20090312

REACTIONS (2)
  - ENDOCARDITIS [None]
  - SEPSIS [None]
